FAERS Safety Report 8153428-0 (Version None)
Quarter: 2012Q1

REPORT INFORMATION
  Report Type: 
  Country: None (occurrence: None)
  Receive Date: 20120221
  Receipt Date: 20120210
  Transmission Date: 20120608
  Serious: Yes (Death, Hospitalization, Other)
  Sender: FDA-Public Use
  Company Number: JP-ROCHE-1026189

PATIENT
  Sex: Female
  Weight: 56 kg

DRUGS (8)
  1. KYTRIL [Concomitant]
     Route: 041
     Dates: start: 20110920, end: 20111101
  2. DECADRON [Concomitant]
     Route: 041
     Dates: start: 20110920, end: 20111101
  3. ZANTAC [Concomitant]
     Route: 041
     Dates: start: 20110920, end: 20111101
  4. ISOVORIN [Concomitant]
     Indication: COLON CANCER METASTATIC
     Route: 041
     Dates: start: 20110920, end: 20111101
  5. FLUOROURACIL [Concomitant]
     Indication: COLON CANCER METASTATIC
     Route: 040
     Dates: start: 20110920, end: 20111101
  6. AVASTIN [Suspect]
     Indication: COLON CANCER METASTATIC
     Route: 041
     Dates: start: 20111004, end: 20111101
  7. OXALIPLATIN [Concomitant]
     Indication: COLON CANCER METASTATIC
     Route: 041
     Dates: start: 20110920, end: 20111101
  8. FLUOROURACIL [Concomitant]
     Route: 041
     Dates: start: 20110920, end: 20111101

REACTIONS (6)
  - GASTROINTESTINAL PERFORATION [None]
  - SEPTIC SHOCK [None]
  - PNEUMONIA [None]
  - DISSEMINATED INTRAVASCULAR COAGULATION [None]
  - SEPSIS [None]
  - PANCYTOPENIA [None]
